FAERS Safety Report 11802766 (Version 1)
Quarter: 2015Q4

REPORT INFORMATION
  Report Type: Spontaneous
  Country: US (occurrence: US)
  Receive Date: 20151204
  Receipt Date: 20151204
  Transmission Date: 20160305
  Serious: No
  Sender: FDA-Public Use
  Company Number: US-BEH-2014046755

PATIENT
  Sex: Female
  Weight: 104 kg

DRUGS (9)
  1. BERINERT [Suspect]
     Active Substance: HUMAN C1-ESTERASE INHIBITOR
     Indication: HEREDITARY ANGIOEDEMA
     Dosage: FOR HAE ATTACK
     Route: 042
  2. EPIPEN [Concomitant]
     Active Substance: EPINEPHRINE
  3. CENTRUM MULTIVITAMIN [Concomitant]
  4. DIPHENHYDRAMINE. [Concomitant]
     Active Substance: DIPHENHYDRAMINE
  5. SYNTHROID [Concomitant]
     Active Substance: LEVOTHYROXINE SODIUM
  6. SODIUM CHLORIDE. [Concomitant]
     Active Substance: SODIUM CHLORIDE
  7. TRANEXAMIC ACID POWDER [Concomitant]
  8. MELATONIN [Concomitant]
     Active Substance: MELATONIN
  9. STERILE WATER [Concomitant]
     Active Substance: WATER

REACTIONS (1)
  - Sinusitis [Unknown]
